FAERS Safety Report 9333561 (Version 1)
Quarter: 2013Q2

REPORT INFORMATION
  Report Type: Spontaneous
  Country: CA (occurrence: CA)
  Receive Date: 20130606
  Receipt Date: 20130606
  Transmission Date: 20140414
  Serious: Yes (Other)
  Sender: FDA-Public Use
  Company Number: CA-ASTRAZENECA-2013SE38102

PATIENT
  Sex: Female

DRUGS (2)
  1. SEROQUEL [Suspect]
     Route: 048
  2. ANTIBIOTIC [Concomitant]

REACTIONS (4)
  - Colitis [Unknown]
  - Haemorrhage [Unknown]
  - Malaise [Unknown]
  - Drug administration error [Unknown]
